FAERS Safety Report 21057103 (Version 2)
Quarter: 2022Q3

REPORT INFORMATION
  Report Type: Spontaneous
  Country: JP (occurrence: JP)
  Receive Date: 20220708
  Receipt Date: 20220916
  Transmission Date: 20221027
  Serious: Yes (Hospitalization, Other)
  Sender: FDA-Public Use
  Company Number: JP-ASTELLAS-2022JP003381

PATIENT
  Age: 59 Year
  Sex: Female
  Weight: 45.6 kg

DRUGS (23)
  1. TACROLIMUS [Suspect]
     Active Substance: TACROLIMUS
     Indication: Immunosuppressant drug therapy
     Dosage: 4 MG, ONCE DAILY (MORNING)
     Route: 048
     Dates: end: 20210315
  2. TACROLIMUS [Suspect]
     Active Substance: TACROLIMUS
     Indication: Renal transplant
     Dosage: 4 MG, ONCE DAILY (MORNING)
     Route: 048
     Dates: start: 20210318
  3. TACROLIMUS [Suspect]
     Active Substance: TACROLIMUS
     Indication: Immunosuppressant drug therapy
     Dosage: 0.5 MG, ONCE DAILY (MORNING)
     Route: 048
     Dates: end: 20210315
  4. TACROLIMUS [Suspect]
     Active Substance: TACROLIMUS
     Indication: Renal transplant
     Dosage: 0.5 MG, ONCE DAILY (MORNING)
     Route: 048
     Dates: start: 20210318
  5. FLUCONAZOLE [Suspect]
     Active Substance: FLUCONAZOLE
     Indication: Product used for unknown indication
     Dosage: UNK UNK, UNKNOWN FREQ.
     Route: 065
     Dates: start: 20210316, end: 20210322
  6. BASILIXIMAB [Concomitant]
     Active Substance: BASILIXIMAB
     Indication: Immunosuppressant drug therapy
     Dosage: UNK UNK, UNKNOWN FREQ.
     Route: 065
  7. CELLCEPT [Concomitant]
     Active Substance: MYCOPHENOLATE MOFETIL
     Indication: Immunosuppressant drug therapy
     Dosage: 2 DF, ONCE DAILY (MORNING)
     Route: 048
     Dates: end: 20210315
  8. CELLCEPT [Concomitant]
     Active Substance: MYCOPHENOLATE MOFETIL
     Indication: Renal transplant
     Dosage: 2 DF, ONCE DAILY (MORNING)
     Route: 048
     Dates: start: 20210318
  9. MEDROL [Concomitant]
     Active Substance: METHYLPREDNISOLONE
     Indication: Immunosuppressant drug therapy
     Dosage: 6 DF, ONCE DAILY (MORNING)
     Route: 048
     Dates: start: 20210315, end: 20210315
  10. MEDROL [Concomitant]
     Active Substance: METHYLPREDNISOLONE
     Indication: Renal transplant
     Dosage: 6 DF, ONCE DAILY (MORNING)
     Route: 048
     Dates: start: 20210318
  11. ATORVASTATIN [Concomitant]
     Active Substance: ATORVASTATIN
     Indication: Product used for unknown indication
     Dosage: 1 DF, ONCE DAILY (MORNING)
     Route: 048
     Dates: end: 20210315
  12. ATORVASTATIN [Concomitant]
     Active Substance: ATORVASTATIN
     Dosage: 1 DF, ONCE DAILY (MORNING)
     Route: 048
     Dates: start: 20210318
  13. CALCITRIOL [Concomitant]
     Active Substance: CALCITRIOL
     Indication: Product used for unknown indication
     Dosage: 1 DF, ONCE DAILY (MORNING)
     Route: 048
     Dates: end: 20210315
  14. CALCITRIOL [Concomitant]
     Active Substance: CALCITRIOL
     Dosage: 1 DF, ONCE DAILY (MORNING)
     Route: 048
     Dates: start: 20210318
  15. CALTAN [Concomitant]
     Active Substance: CALCIUM CARBONATE
     Indication: Product used for unknown indication
     Dosage: 1 DF, ONCE DAILY (BEFORE BREAKFAST)
     Route: 048
     Dates: end: 20210315
  16. CALTAN [Concomitant]
     Active Substance: CALCIUM CARBONATE
     Dosage: 1 DF, ONCE DAILY (BEFORE BREAKFAST)
     Route: 048
     Dates: start: 20210318
  17. CILNIDIPINE [Concomitant]
     Active Substance: CILNIDIPINE
     Indication: Product used for unknown indication
     Dosage: 1 DF, ONCE DAILY (MORNING)
     Route: 048
     Dates: end: 20210315
  18. CILNIDIPINE [Concomitant]
     Active Substance: CILNIDIPINE
     Dosage: 1 DF, ONCE DAILY (MORNING)
     Route: 048
     Dates: start: 20210318
  19. AMLODIPINE [Concomitant]
     Active Substance: AMLODIPINE BESYLATE
     Indication: Product used for unknown indication
     Dosage: 1 DF, ONCE DAILY (MORNING)
     Route: 048
     Dates: end: 20210315
  20. AMLODIPINE [Concomitant]
     Active Substance: AMLODIPINE BESYLATE
     Dosage: 1 DF, ONCE DAILY (MORNING)
     Route: 048
     Dates: start: 20210318
  21. CARDENALIN [Concomitant]
     Active Substance: DOXAZOSIN MESYLATE
     Indication: Product used for unknown indication
     Dosage: 0.5 MG, ONCE DAILY (MORNING)
     Route: 048
     Dates: end: 20210315
  22. CARDENALIN [Concomitant]
     Active Substance: DOXAZOSIN MESYLATE
     Dosage: 0.5 MG, ONCE DAILY (MORNING)
     Route: 048
     Dates: start: 20210318
  23. CEFCAPENE PIVOXIL HYDROCHLORIDE HYDRATE [Concomitant]
     Active Substance: CEFCAPENE PIVOXIL HYDROCHLORIDE HYDRATE
     Indication: Product used for unknown indication
     Dosage: 1 DF, ONCE DAILY (MORNING)
     Route: 065
     Dates: end: 20210311

REACTIONS (5)
  - Vitamin K deficiency [Recovered/Resolved]
  - Haemorrhage [Recovered/Resolved]
  - Activated partial thromboplastin time prolonged [Recovered/Resolved]
  - International normalised ratio increased [Recovered/Resolved]
  - Diarrhoea [Recovered/Resolved]

NARRATIVE: CASE EVENT DATE: 20210319
